FAERS Safety Report 4570734-7 (Version None)
Quarter: 2005Q1

REPORT INFORMATION
  Report Type: 
  Country: None (occurrence: None)
  Receive Date: 20050202
  Receipt Date: 20050127
  Transmission Date: 20050727
  Serious: Yes (Hospitalization, Other)
  Sender: FDA-Public Use
  Company Number: SEWYE377828JAN05

PATIENT
  Sex: Male

DRUGS (2)
  1. EFFEXOR [Suspect]
     Dosage: 75 MG 3X PER 1 DAY, ORAL
     Route: 048
  2. SOBRIL (OXAZEPAM) [Concomitant]

REACTIONS (1)
  - SKIN ULCER [None]
